FAERS Safety Report 4919007-0 (Version None)
Quarter: 2006Q1

REPORT INFORMATION
  Report Type: 
  Country: None (occurrence: None)
  Receive Date: 20060222
  Receipt Date: 20050708
  Transmission Date: 20060701
  Serious: Yes (Death)
  Sender: FDA-Public Use
  Company Number: US-MERCK-0507USA01204

PATIENT
  Age: 57 Year
  Sex: Female
  Weight: 105 kg

DRUGS (9)
  1. VIOXX [Suspect]
     Indication: ARTHRITIS
     Route: 048
     Dates: start: 20000601, end: 20030901
  2. LOTREL [Concomitant]
     Route: 065
  3. ZOCOR [Concomitant]
     Indication: BLOOD CHOLESTEROL INCREASED
     Route: 065
     Dates: start: 20030101
  4. TOPROL-XL [Concomitant]
     Route: 065
     Dates: start: 20030101
  5. FUROSEMIDE [Concomitant]
     Route: 065
     Dates: start: 20030101
  6. CARDIZEM CD [Concomitant]
     Route: 065
     Dates: start: 20010101
  7. HYDROCHLOROTHIAZIDE [Concomitant]
     Route: 065
     Dates: start: 20010101
  8. RELAFEN [Concomitant]
     Route: 065
     Dates: start: 19990101, end: 20000101
  9. ASPIRIN [Concomitant]
     Route: 065
     Dates: end: 20030101

REACTIONS (3)
  - ADVERSE EVENT [None]
  - DEATH [None]
  - INJURY [None]
